FAERS Safety Report 8984728 (Version 1)
Quarter: 2012Q4

REPORT INFORMATION
  Report Type: 
  Country: IT (occurrence: IT)
  Receive Date: 20121226
  Receipt Date: 20121226
  Transmission Date: 20130627
  Serious: Yes (Death, Other)
  Sender: FDA-Public Use
  Company Number: PHHY2012IT119095

PATIENT
  Age: 23 Year
  Sex: Male

DRUGS (5)
  1. CICLOSPORIN [Suspect]
     Indication: PROPHYLAXIS AGAINST GRAFT VERSUS HOST DISEASE
  2. CYCLOPHOSPHAMIDE [Concomitant]
  3. BUSULFAN [Concomitant]
  4. VINCRISTINE [Concomitant]
  5. STEROIDS NOS [Concomitant]

REACTIONS (2)
  - Malignant neoplasm progression [Fatal]
  - Acute graft versus host disease in skin [Unknown]
